FAERS Safety Report 5140671-8 (Version None)
Quarter: 2006Q4

REPORT INFORMATION
  Report Type: 
  Country: None (occurrence: None)
  Receive Date: 20061025
  Receipt Date: 20061012
  Transmission Date: 20070319
  Serious: Yes (Other)
  Sender: FDA-Public Use
  Company Number: 2006125848

PATIENT
  Age: 65 Year
  Sex: Female

DRUGS (4)
  1. CABERGOLINE [Suspect]
     Dosage: 2 MG (2 MG,1 IN 1 D),ORAL
     Route: 048
     Dates: start: 20060701, end: 20061012
  2. LIPITOR [Concomitant]
  3. ALPRAZOLAM [Concomitant]
  4. HALCION [Concomitant]

REACTIONS (2)
  - CONFUSIONAL STATE [None]
  - DELIRIUM [None]
